FAERS Safety Report 14928145 (Version 1)
Quarter: 2018Q2

REPORT INFORMATION
  Report Type: Spontaneous
  Country: IN (occurrence: IN)
  Receive Date: 20180523
  Receipt Date: 20180523
  Transmission Date: 20180711
  Serious: Yes (Other)
  Sender: FDA-Public Use
  Company Number: IN-ACCORD-067262

PATIENT
  Age: 32 Year
  Sex: Male

DRUGS (5)
  1. LAMIVUDINE. [Suspect]
     Active Substance: LAMIVUDINE
     Indication: ANTIRETROVIRAL THERAPY
  2. NEVIRAPINE. [Suspect]
     Active Substance: NEVIRAPINE
     Indication: ANTIRETROVIRAL THERAPY
  3. POTASSIUM IODIDE. [Suspect]
     Active Substance: POTASSIUM IODIDE
     Indication: FUNGAL INFECTION
     Dosage: GRADUALLY INCREASING TO A MAXIMUM OF 40 DROPS PER DAY
  4. ZIDOVUDINE. [Suspect]
     Active Substance: ZIDOVUDINE
     Indication: ANTIRETROVIRAL THERAPY
  5. ITRACONAZOLE. [Suspect]
     Active Substance: ITRACONAZOLE
     Indication: FUNGAL INFECTION
     Route: 048

REACTIONS (2)
  - Treatment failure [Unknown]
  - Condition aggravated [Recovered/Resolved]
